FAERS Safety Report 25642554 (Version 2)
Quarter: 2025Q4

REPORT INFORMATION
  Report Type: Spontaneous
  Country: US (occurrence: US)
  Receive Date: 20250805
  Receipt Date: 20251014
  Transmission Date: 20260119
  Serious: No
  Sender: GLAXOSMITHKLINE
  Company Number: US-GSK-US2025086334

PATIENT
  Age: 76 Year
  Sex: Male

DRUGS (2)
  1. INCRUSE ELLIPTA [Suspect]
     Active Substance: UMECLIDINIUM BROMIDE
     Indication: Asthma
     Dosage: 1 PUFF(S), QD
     Dates: start: 20250608
  2. BREYNA [Concomitant]
     Active Substance: BUDESONIDE\FORMOTEROL FUMARATE
     Indication: Asthma
     Dosage: 2 PUFF(S), BID,160/4.5

REACTIONS (1)
  - Cough [Recovering/Resolving]
